FAERS Safety Report 6507148-6 (Version None)
Quarter: 2009Q4

REPORT INFORMATION
  Report Type: 
  Country: None (occurrence: None)
  Receive Date: 20091221
  Receipt Date: 20091210
  Transmission Date: 20100525
  Serious: Yes (Other)
  Sender: FDA-Public Use
  Company Number: PHHY2009NL54842

PATIENT
  Sex: Male

DRUGS (17)
  1. ZOMETA [Suspect]
     Dosage: 4MG/5ML, NACL 0.9% 100ML, I.V. 30 MINUTES
     Route: 042
     Dates: start: 20080903
  2. ZOMETA [Suspect]
     Dosage: 4MG/5ML, NACL 0.9% 100ML,
     Dates: start: 20080930
  3. ZOMETA [Suspect]
     Dosage: 4MG/5ML, NACL 0.9% 100ML,
     Dates: start: 20081030
  4. ZOMETA [Suspect]
     Dosage: 4MG/5ML, NACL 0.9% 100ML,
     Dates: start: 20081126
  5. ZOMETA [Suspect]
     Dosage: 4MG/5ML, NACL 0.9% 100ML,
     Dates: start: 20081223
  6. ZOMETA [Suspect]
     Dosage: 4MG/5ML, NACL 0.9% 100ML,
     Dates: start: 20090120
  7. ZOMETA [Suspect]
     Dosage: 4MG/5ML, NACL 0.9% 100ML,
     Dates: start: 20090303
  8. ZOMETA [Suspect]
     Dosage: 4MG/5ML, NACL 0.9% 100ML,
     Dates: start: 20090401
  9. ZOMETA [Suspect]
     Dosage: 4MG/5ML, NACL 0.9% 100ML,
     Dates: start: 20090428
  10. ZOMETA [Suspect]
     Dosage: 4MG/5ML, NACL 0.9% 100ML,
     Dates: start: 20090526
  11. ZOMETA [Suspect]
     Dosage: 4MG/5ML, NACL 0.9% 100ML,
     Dates: start: 20090622
  12. ZOMETA [Suspect]
     Dosage: 4MG/5ML, NACL 0.9% 100ML,
     Dates: start: 20090720
  13. ZOMETA [Suspect]
     Dosage: 4MG/5ML, NACL 0.9% 100ML,
     Dates: start: 20090817
  14. ZOMETA [Suspect]
     Dosage: 4MG/5ML, NACL 0.9% 100ML,
     Dates: start: 20090918
  15. ZOMETA [Suspect]
     Dosage: 4MG/5ML, NACL 0.9% 100ML,
     Dates: start: 20091013
  16. ZOMETA [Suspect]
     Dosage: 4MG/5ML, NACL 0.9% 100ML,
     Dates: start: 20091110
  17. ZOMETA [Suspect]
     Dosage: 4MG/5ML, NACL 0.9% 100ML,
     Dates: start: 20091209

REACTIONS (4)
  - BONE OPERATION [None]
  - DIARRHOEA [None]
  - JAW DISORDER [None]
  - PAIN IN JAW [None]
